FAERS Safety Report 19401096 (Version 1)
Quarter: 2021Q2

REPORT INFORMATION
  Report Type: Spontaneous
  Country: DE (occurrence: DE)
  Receive Date: 20210611
  Receipt Date: 20210611
  Transmission Date: 20210717
  Serious: Yes (Hospitalization)
  Sender: FDA-Public Use
  Company Number: DE-MICRO LABS LIMITED-ML2021-01803

PATIENT
  Age: 88 Year
  Sex: Female

DRUGS (9)
  1. TILIDINE/NALOXONE [Concomitant]
     Active Substance: NALOXONE HYDROCHLORIDE\TILIDINE HYDROCHLORIDE
  2. METAMIZOL [Concomitant]
     Active Substance: METAMIZOLE SODIUM
     Dosage: 500 MG, 1?1?1?0, TABLETTEN
  3. LEVOTHYROXIN?NATRIUM [Concomitant]
     Active Substance: LEVOTHYROXINE SODIUM
     Dosage: 75 UG, 1?0?0?0, TABLETTEN
  4. AMOXICILLIN/CLAVULANIC ACID [Suspect]
     Active Substance: AMOXICILLIN\CLAVULANIC ACID
     Dosage: 875|125 MG, TABLETTEN
  5. CANDESARTAN. [Concomitant]
     Active Substance: CANDESARTAN
     Dosage: 8 MG, 1?0?1?0, TABLETTEN
  6. CLINDAMYCIN. [Suspect]
     Active Substance: CLINDAMYCIN
     Dosage: 600 MG, TABLETTEN
  7. METOPROLOL. [Concomitant]
     Active Substance: METOPROLOL
     Dosage: 8 MG, 1?0?1?0, TABLETTEN
  8. TORASEMID [Concomitant]
     Active Substance: TORSEMIDE
     Dosage: 10 MG, 1?0.5?0?0, TABLETTEN
  9. APIXABAN [Concomitant]
     Active Substance: APIXABAN
     Dosage: 2.5 MG, 1?0?1?0, TABLETTEN

REACTIONS (2)
  - Diarrhoea [Recovering/Resolving]
  - Dyspnoea [Recovering/Resolving]
